FAERS Safety Report 13289693 (Version 4)
Quarter: 2017Q2

REPORT INFORMATION
  Report Type: Spontaneous
  Country: IT (occurrence: IT)
  Receive Date: 20170303
  Receipt Date: 20170510
  Transmission Date: 20170830
  Serious: Yes (Life-Threatening, Other)
  Sender: FDA-Public Use
  Company Number: IT-009507513-1702ITA010499

PATIENT
  Age: 72 Year
  Sex: Female
  Weight: 55 kg

DRUGS (6)
  1. BRIDION [Suspect]
     Active Substance: SUGAMMADEX
     Indication: NEUROMUSCULAR BLOCKADE REVERSAL
     Dosage: THE FIRST DOSE: 200 MG, ONCE
     Route: 042
     Dates: start: 20170220, end: 20170220
  2. BRIDION [Suspect]
     Active Substance: SUGAMMADEX
     Dosage: THE THIRD DOSE: 200 MG, ONCE
     Route: 042
     Dates: start: 20170220, end: 20170220
  3. ACETAMINOPHEN. [Concomitant]
     Active Substance: ACETAMINOPHEN
     Indication: ANALGESIC THERAPY
     Dosage: 1 G, UNK
     Route: 042
     Dates: start: 20170220, end: 20170220
  4. ESMERON [Suspect]
     Active Substance: ROCURONIUM BROMIDE
     Indication: MUSCLE RELAXANT THERAPY
     Dosage: 50 MG TOTAL (ONCE)(STRENGTH: 10 MG/ML)
     Route: 042
     Dates: start: 20170220, end: 20170220
  5. DELTACORTENE [Concomitant]
     Active Substance: PREDNISONE
  6. BRIDION [Suspect]
     Active Substance: SUGAMMADEX
     Dosage: THE SECOND DOSE: 400 MG, ONCE (ALSO REPORTED AS 200MG+200MG)
     Route: 042
     Dates: start: 20170220, end: 20170220

REACTIONS (1)
  - Respiratory arrest [Recovered/Resolved]

NARRATIVE: CASE EVENT DATE: 20170220
